FAERS Safety Report 15022451 (Version 1)
Quarter: 2018Q2

REPORT INFORMATION
  Report Type: Spontaneous
  Country: PT (occurrence: PT)
  Receive Date: 20180618
  Receipt Date: 20180618
  Transmission Date: 20180711
  Serious: Yes (Hospitalization, Disabling, Other)
  Sender: FDA-Public Use
  Company Number: IND-PT-009507513-1806PRT005319

PATIENT
  Age: 38 Year
  Sex: Female

DRUGS (3)
  1. ETODOLAC. [Concomitant]
     Active Substance: ETODOLAC
     Indication: MUSCULOSKELETAL PAIN
     Dosage: 600 MG, QD
     Route: 048
     Dates: start: 20180404
  2. ETORICOXIB [Suspect]
     Active Substance: ETORICOXIB
     Indication: MUSCULOSKELETAL PAIN
     Dosage: 90 MG, QD
     Route: 048
     Dates: start: 20180420, end: 2018
  3. ADALGUR N [Concomitant]
     Active Substance: ACETAMINOPHEN\THIOCOLCHICOSIDE
     Indication: MUSCULOSKELETAL PAIN
     Route: 048
     Dates: start: 20180502

REACTIONS (2)
  - Abdominal pain upper [Recovering/Resolving]
  - Microcytic anaemia [Not Recovered/Not Resolved]

NARRATIVE: CASE EVENT DATE: 20180420
